FAERS Safety Report 9525816 (Version 2)
Quarter: 2014Q1

REPORT INFORMATION
  Report Type: Spontaneous
  Country: US (occurrence: US)
  Receive Date: 20130916
  Receipt Date: 20140228
  Transmission Date: 20141002
  Serious: Yes (Hospitalization)
  Sender: FDA-Public Use
  Company Number: US-BIOGENIDEC-2013BI084621

PATIENT
  Age: 57 Year
  Sex: Female

DRUGS (14)
  1. TECFIDERA [Suspect]
     Indication: MULTIPLE SCLEROSIS
  2. SERTRALINE HCL [Concomitant]
  3. PERPHENAZINE [Concomitant]
  4. OMEPRAZOLE [Concomitant]
  5. LOSARTAN POTASSIUM- HCTZ [Concomitant]
  6. LEVOTHYROXINE SODIUM [Concomitant]
  7. HYOSCYAMINE SULFATE ER [Concomitant]
  8. FOLPLEX 2.2 [Concomitant]
  9. DIAZEPAM [Concomitant]
  10. CLONAZEPAM [Concomitant]
  11. CENTRUM SILVER VITAMINS [Concomitant]
  12. CARVEDILOL [Concomitant]
  13. ASPIRIN [Concomitant]
  14. AMITRIPTYLINE HCL [Concomitant]

REACTIONS (3)
  - Optic neuritis [Unknown]
  - Hypertension [Unknown]
  - Heart rate increased [Unknown]
